FAERS Safety Report 18384584 (Version 2)
Quarter: 2020Q4

REPORT INFORMATION
  Report Type: Spontaneous
  Country: BG (occurrence: BG)
  Receive Date: 20201015
  Receipt Date: 20201026
  Transmission Date: 20210114
  Serious: Yes (Other)
  Sender: FDA-Public Use
  Company Number: NVSC2020BG272524

PATIENT
  Age: 64 Year
  Sex: Female

DRUGS (2)
  1. XIMEBAC [Suspect]
     Active Substance: CEFPODOXIME
     Indication: RESPIRATORY TRACT INFECTION
     Dosage: 200 MG, BID
     Route: 048
  2. XIMEBAC [Suspect]
     Active Substance: CEFPODOXIME
     Indication: PLEURAL EFFUSION

REACTIONS (2)
  - Rectal haemorrhage [Recovered/Resolved]
  - Chest injury [Unknown]

NARRATIVE: CASE EVENT DATE: 202010
